FAERS Safety Report 21086648 (Version 2)
Quarter: 2022Q3

REPORT INFORMATION
  Report Type: Other
  Country: TR (occurrence: None)
  Receive Date: 20220715
  Receipt Date: 20220801
  Transmission Date: 20221027
  Serious: Yes (Hospitalization, Other)
  Sender: FDA-Public Use
  Company Number: TR-DEXPHARM-20221108

PATIENT
  Age: 86 Year
  Sex: Female

DRUGS (1)
  1. CHLORHEXIDINE GLUCONATE [Suspect]
     Active Substance: CHLORHEXIDINE GLUCONATE

REACTIONS (2)
  - Burkholderia cepacia complex infection [Recovered/Resolved]
  - Product contamination microbial [Recovered/Resolved]

NARRATIVE: CASE EVENT DATE: 20190301
